FAERS Safety Report 7728618-9 (Version None)
Quarter: 2011Q3

REPORT INFORMATION
  Report Type: 
  Country: None (occurrence: None)
  Receive Date: 20110831
  Receipt Date: 20110831
  Transmission Date: 20111222
  Serious: Yes (Hospitalization)
  Sender: FDA-Public Use
  Company Number: None

PATIENT
  Age: 58 Year
  Sex: Male
  Weight: 86.1834 kg

DRUGS (1)
  1. ALEFACEPT 15MG SUBCUTANEOUS [Suspect]
     Indication: IMMUNOSUPPRESSION
     Dosage: 15MG WEEKLY SUBCUTANEOUS
     Route: 058
     Dates: start: 20101119, end: 20110210

REACTIONS (2)
  - CYTOMEGALOVIRUS TEST POSITIVE [None]
  - DIARRHOEA [None]
